FAERS Safety Report 14831740 (Version 2)
Quarter: 2018Q2

REPORT INFORMATION
  Report Type: Report from Study
  Country: US (occurrence: US)
  Receive Date: 20180501
  Receipt Date: 20180507
  Transmission Date: 20180711
  Serious: Yes (Hospitalization)
  Sender: FDA-Public Use
  Company Number: US-ROCHE-2117010

PATIENT

DRUGS (80)
  1. RANIBIZUMAB. [Suspect]
     Active Substance: RANIBIZUMAB
     Dosage: RIGHT EYE (OD)
     Route: 050
     Dates: start: 20121128
  2. ZESTRIL [Concomitant]
     Active Substance: LISINOPRIL
     Route: 048
     Dates: start: 20130301
  3. NORVASC [Concomitant]
     Active Substance: AMLODIPINE BESYLATE
     Route: 048
     Dates: start: 20130301
  4. ROCEPHIN [Concomitant]
     Active Substance: CEFTRIAXONE SODIUM
     Route: 042
     Dates: start: 20130508
  5. CEFTRIAXONE. [Concomitant]
     Active Substance: CEFTRIAXONE
     Route: 042
     Dates: start: 20130826
  6. FLAGYL [Concomitant]
     Active Substance: METRONIDAZOLE\METRONIDAZOLE HYDROCHLORIDE
     Route: 048
     Dates: start: 20130828
  7. DILAUDID [Concomitant]
     Active Substance: HYDROMORPHONE HYDROCHLORIDE
     Route: 048
     Dates: start: 20130913
  8. METOPROLOL. [Concomitant]
     Active Substance: METOPROLOL
     Route: 048
     Dates: start: 20130913
  9. CILOXAN [Concomitant]
     Active Substance: CIPROFLOXACIN HYDROCHLORIDE
     Dosage: 1/GTT-DROPS
     Route: 047
     Dates: start: 20140718
  10. RANIBIZUMAB. [Suspect]
     Active Substance: RANIBIZUMAB
     Indication: DIABETIC RETINOPATHY
     Route: 050
  11. RANIBIZUMAB. [Suspect]
     Active Substance: RANIBIZUMAB
     Dosage: EYE:OS
     Route: 050
     Dates: start: 20130109
  12. LISINOPRIL. [Concomitant]
     Active Substance: LISINOPRIL
     Route: 048
  13. IBUPROFEN. [Concomitant]
     Active Substance: IBUPROFEN
     Route: 048
  14. PREGABALIN. [Concomitant]
     Active Substance: PREGABALIN
     Route: 048
  15. COREG [Concomitant]
     Active Substance: CARVEDILOL
     Route: 048
  16. LANTUS [Concomitant]
     Active Substance: INSULIN GLARGINE
     Route: 048
     Dates: start: 20130301
  17. ZOFRAN [Concomitant]
     Active Substance: ONDANSETRON HYDROCHLORIDE
     Route: 048
     Dates: start: 20130826
  18. PROLENSA [Concomitant]
     Active Substance: BROMFENAC SODIUM
     Route: 047
     Dates: start: 20140718
  19. CYMBALTA [Concomitant]
     Active Substance: DULOXETINE HYDROCHLORIDE
     Route: 048
     Dates: start: 20130301
  20. PRAVASTATIN. [Concomitant]
     Active Substance: PRAVASTATIN
     Route: 048
     Dates: start: 20130301
  21. LISINOPRIL. [Concomitant]
     Active Substance: LISINOPRIL
     Route: 048
     Dates: start: 20130511
  22. CIPROFLOXACIN. [Concomitant]
     Active Substance: CIPROFLOXACIN
     Route: 048
     Dates: start: 20130511
  23. METOLAZONE. [Concomitant]
     Active Substance: METOLAZONE
     Route: 048
     Dates: start: 20130813
  24. BACTRIM [Concomitant]
     Active Substance: SULFAMETHOXAZOLE\TRIMETHOPRIM
     Route: 048
  25. LEVEMIR [Concomitant]
     Active Substance: INSULIN DETEMIR
     Route: 058
  26. XANAX [Concomitant]
     Active Substance: ALPRAZOLAM
     Route: 048
     Dates: start: 20140115
  27. DUREZOL [Concomitant]
     Active Substance: DIFLUPREDNATE
     Dosage: 1/GTT-DROPS
     Route: 047
     Dates: start: 20140718
  28. PRILOSEC [Concomitant]
     Active Substance: OMEPRAZOLE MAGNESIUM
     Route: 048
  29. LATANOPROST. [Concomitant]
     Active Substance: LATANOPROST
     Dosage: 1/GTT-DROPS
     Route: 047
     Dates: start: 20170509
  30. SAFFLOWER OIL [Concomitant]
     Active Substance: SAFFLOWER OIL
     Route: 048
  31. VITAMIN D3 [Concomitant]
     Active Substance: CHOLECALCIFEROL
     Route: 048
  32. RANIBIZUMAB. [Suspect]
     Active Substance: RANIBIZUMAB
     Dosage: EYE:OD
     Route: 050
     Dates: start: 20130109
  33. RANIBIZUMAB. [Suspect]
     Active Substance: RANIBIZUMAB
     Dosage: EYE:OS
     Route: 050
     Dates: start: 20141105
  34. LORAZEPAM. [Concomitant]
     Active Substance: LORAZEPAM
     Route: 048
  35. HUMULIN N [Concomitant]
     Active Substance: INSULIN HUMAN
     Route: 058
     Dates: start: 20130301
  36. LASIX [Concomitant]
     Active Substance: FUROSEMIDE
     Route: 048
     Dates: start: 20130301
  37. LIPITOR [Concomitant]
     Active Substance: ATORVASTATIN CALCIUM
     Route: 048
     Dates: start: 20130301
  38. AUGMENTIN [Concomitant]
     Active Substance: AMOXICILLIN\CLAVULANATE POTASSIUM
     Route: 048
     Dates: start: 20130813
  39. ASPIRIN. [Concomitant]
     Active Substance: ASPIRIN
     Route: 048
     Dates: start: 20130813
  40. PHENERGAN [Concomitant]
     Active Substance: PROMETHAZINE HYDROCHLORIDE
     Route: 048
     Dates: start: 20121230
  41. COUMADIN [Concomitant]
     Active Substance: WARFARIN SODIUM
     Route: 048
     Dates: start: 20130913
  42. PROLENSA [Concomitant]
     Active Substance: BROMFENAC SODIUM
     Dosage: 1/GTT-DROPS
     Route: 047
     Dates: start: 20140718
  43. RANIBIZUMAB. [Suspect]
     Active Substance: RANIBIZUMAB
     Dosage: OS
     Route: 050
     Dates: start: 20130130
  44. INSULIN GLARGINE [Concomitant]
     Active Substance: INSULIN GLARGINE
     Route: 058
  45. CITALOPRAM [Concomitant]
     Active Substance: CITALOPRAM HYDROBROMIDE
     Route: 048
  46. DEPAKOTE [Concomitant]
     Active Substance: DIVALPROEX SODIUM
     Route: 048
     Dates: start: 20130301
  47. HYDRALAZINE [Concomitant]
     Active Substance: HYDRALAZINE HYDROCHLORIDE
     Route: 048
     Dates: start: 20130511
  48. NOVOLOG [Concomitant]
     Active Substance: INSULIN ASPART
     Route: 048
     Dates: start: 20170612
  49. DUREZOL [Concomitant]
     Active Substance: DIFLUPREDNATE
     Dosage: 1/GTT-DROPS
     Route: 047
     Dates: start: 20170614
  50. RANIBIZUMAB. [Suspect]
     Active Substance: RANIBIZUMAB
     Dosage: EYE:OD
     Route: 050
     Dates: start: 20130830
  51. RANIBIZUMAB. [Suspect]
     Active Substance: RANIBIZUMAB
     Dosage: EYE:OS
     Route: 050
     Dates: start: 20140228
  52. RANIBIZUMAB. [Suspect]
     Active Substance: RANIBIZUMAB
     Dosage: EYE:OS
     Route: 050
     Dates: start: 20141203
  53. CEFTIN [Concomitant]
     Active Substance: CEFUROXIME AXETIL
     Route: 048
     Dates: start: 20130813
  54. ALBUMIN HUMAN [Concomitant]
     Active Substance: ALBUMIN HUMAN
     Route: 014
     Dates: start: 20130910
  55. ATORVASTATIN [Concomitant]
     Active Substance: ATORVASTATIN
     Route: 047
     Dates: start: 20140718
  56. AURYXIA [Concomitant]
     Active Substance: TETRAFERRIC TRICITRATE DECAHYDRATE
     Route: 048
  57. RANIBIZUMAB. [Suspect]
     Active Substance: RANIBIZUMAB
     Dosage: IN LEFT EYE (OS)
     Route: 050
     Dates: start: 20121128
  58. RANIBIZUMAB. [Suspect]
     Active Substance: RANIBIZUMAB
     Dosage: EYE:OS
     Route: 050
     Dates: start: 20130830
  59. RANIBIZUMAB. [Suspect]
     Active Substance: RANIBIZUMAB
     Dosage: EYE:OS
     Route: 050
     Dates: start: 20131111
  60. RANIBIZUMAB. [Suspect]
     Active Substance: RANIBIZUMAB
     Dosage: EYE:OS
     Route: 050
     Dates: start: 20140409
  61. FUROSEMIDE. [Concomitant]
     Active Substance: FUROSEMIDE
     Route: 048
  62. URECHOLINE [Concomitant]
     Active Substance: BETHANECHOL CHLORIDE
     Route: 048
     Dates: start: 20130301
  63. ATIVAN [Concomitant]
     Active Substance: LORAZEPAM
     Route: 048
     Dates: start: 20130301
  64. HUMALOG [Concomitant]
     Active Substance: INSULIN LISPRO
     Route: 058
     Dates: start: 20130326
  65. PROCRIT [Concomitant]
     Active Substance: ERYTHROPOIETIN
     Route: 058
     Dates: start: 20130828
  66. LOPRESSOR [Concomitant]
     Active Substance: METOPROLOL TARTRATE
     Route: 048
     Dates: start: 20130828
  67. ZAROXOLYN [Concomitant]
     Active Substance: METOLAZONE
     Route: 048
     Dates: start: 20130913
  68. MINOXIDIL. [Concomitant]
     Active Substance: MINOXIDIL
     Route: 048
     Dates: start: 20131007
  69. REGLAN [Concomitant]
     Active Substance: METOCLOPRAMIDE HYDROCHLORIDE
     Route: 048
     Dates: start: 20140401
  70. ATORVASTATIN [Concomitant]
     Active Substance: ATORVASTATIN
     Route: 047
     Dates: start: 20140718
  71. PREDNISOLONE ACETATE. [Concomitant]
     Active Substance: PREDNISOLONE ACETATE
     Dosage: 1/GTT-DROPS
     Route: 047
     Dates: start: 20170613
  72. RANIBIZUMAB. [Suspect]
     Active Substance: RANIBIZUMAB
     Dosage: EYE:OD
     Route: 050
     Dates: start: 20130620
  73. RANIBIZUMAB. [Suspect]
     Active Substance: RANIBIZUMAB
     Dosage: EYE:OS
     Route: 050
     Dates: start: 20130620
  74. ZOLPIDEM [Concomitant]
     Active Substance: ZOLPIDEM\ZOLPIDEM TARTRATE
     Route: 048
  75. ERYTHROMYCIN. [Concomitant]
     Active Substance: ERYTHROMYCIN
     Route: 048
     Dates: start: 20130301
  76. CELEXA [Concomitant]
     Active Substance: CITALOPRAM HYDROBROMIDE
     Route: 048
     Dates: start: 20130301
  77. HYDROMORPHONE [Concomitant]
     Active Substance: HYDROMORPHONE
     Route: 048
     Dates: start: 20130913
  78. BUSPAR [Concomitant]
     Active Substance: BUSPIRONE HYDROCHLORIDE
     Route: 048
     Dates: start: 20140525
  79. MIRCERA [Concomitant]
     Active Substance: METHOXY POLYETHYLENE GLYCOL-EPOETIN BETA
     Route: 042
  80. BRILINTA [Concomitant]
     Active Substance: TICAGRELOR
     Route: 048
     Dates: start: 20170818

REACTIONS (1)
  - Coronary artery disease [Not Recovered/Not Resolved]

NARRATIVE: CASE EVENT DATE: 20141015
